FAERS Safety Report 8484757-9 (Version None)
Quarter: 2012Q3

REPORT INFORMATION
  Report Type: 
  Country: None (occurrence: None)
  Receive Date: 20120703
  Receipt Date: 20120620
  Transmission Date: 20120928
  Serious: Yes (Hospitalization, Other)
  Sender: FDA-Public Use
  Company Number: JP-UCBSA-052114

PATIENT
  Age: 75 Year
  Sex: Female

DRUGS (15)
  1. FOLIC ACID [Concomitant]
     Dosage: DAILY DOSE 5 MG/WEEK
     Dates: start: 20090605, end: 20120412
  2. NIFEDIPINE [Concomitant]
     Dosage: DAILY DOSE 10 MG
     Dates: start: 20100522, end: 20120403
  3. IFENPRODIL TARTRATE [Concomitant]
     Dosage: DAILY DOSE 30 MG
     Dates: start: 20090605, end: 20120325
  4. RABEPRAZOLE SODIUM [Concomitant]
     Dosage: DAILY DOSE 10 MG
     Dates: start: 20090605
  5. SODIUM HYALURONATE [Concomitant]
     Dosage: DAILY DOSE QS, AS NEEDED
     Dates: start: 20110510
  6. METHOTREXATE [Concomitant]
     Dosage: 4-2-2- MG TOTAL 8 MG IN A WEEK
     Dates: start: 20090605, end: 20120410
  7. PREDNISOLONE [Concomitant]
     Dosage: DAILY DOSE 2 MG
     Dates: start: 20111217
  8. KETOPROFEN [Concomitant]
     Dosage: DAILY DOSE QS, AS NEEDED
     Dates: start: 20090605, end: 20120403
  9. CANDESARTAN CILEXETIL [Concomitant]
     Dosage: DAILY DOSE 12 MG
     Dates: start: 20090605, end: 20120403
  10. CIMZIA [Suspect]
     Indication: RHEUMATOID ARTHRITIS
     Route: 058
     Dates: start: 20090605, end: 20120302
  11. LOXOPROFEN SODIUM HYDRATE [Concomitant]
     Dosage: DAILY DOSE 60 MG
     Dates: start: 20090605, end: 20120403
  12. GLYCYRRHIZA POWDER COMBINED DRUG [Concomitant]
     Dosage: DAILY DOSE 3.9 G
     Dates: start: 20090605, end: 20120325
  13. ALFACALCIDOL [Concomitant]
     Dosage: DAILY DOSE 0.5 MCG
     Dates: start: 20090605, end: 20120403
  14. MELOXICAM [Concomitant]
     Dosage: DAILY DOSE 10 MG
     Dates: start: 20090605, end: 20120403
  15. IRSOGLADINE MALEATE [Concomitant]
     Dosage: DAILY DOSE 2 MG
     Dates: start: 20090605

REACTIONS (1)
  - NASAL SINUS CANCER [None]
